FAERS Safety Report 4309328-7 (Version None)
Quarter: 2004Q1

REPORT INFORMATION
  Report Type: 
  Country: None (occurrence: None)
  Receive Date: 20040302
  Receipt Date: 20040218
  Transmission Date: 20041129
  Serious: Yes (Other)
  Sender: FDA-Public Use
  Company Number: FR-GLAXOSMITHKLINE-B0323893A

PATIENT
  Age: 75 Year
  Sex: Female

DRUGS (2)
  1. AVANDIA [Suspect]
     Indication: DIABETES MELLITUS NON-INSULIN-DEPENDENT
     Dosage: 8MG PER DAY
     Route: 048
     Dates: start: 20030806, end: 20040127
  2. GLUCOPHAGE [Concomitant]
     Indication: DIABETES MELLITUS NON-INSULIN-DEPENDENT
     Dosage: 1000MG TWICE PER DAY
     Route: 048
     Dates: start: 20020701

REACTIONS (2)
  - ATRIAL FIBRILLATION [None]
  - FLUID RETENTION [None]
